FAERS Safety Report 6336817-6 (Version None)
Quarter: 2009Q3

REPORT INFORMATION
  Report Type: 
  Country: None (occurrence: None)
  Receive Date: 20090901
  Receipt Date: 20090825
  Transmission Date: 20100115
  Serious: Yes (Hospitalization, Other)
  Sender: FDA-Public Use
  Company Number: US-JNJCH-2009023179

PATIENT
  Age: 46 Year
  Sex: Male

DRUGS (2)
  1. EUCALYPTOL/MENTHOL/METHYLSALICYLATE/THYMOL [Suspect]
     Indication: ALCOHOL ABUSE
     Dosage: TEXT:UNSPECIFIED
     Route: 048
  2. ETHANOL [Suspect]
     Indication: ALCOHOL ABUSE
     Dosage: TEXT:UNSPECIFIED
     Route: 048

REACTIONS (4)
  - DRUG ABUSE [None]
  - DRUG TOXICITY [None]
  - INCORRECT ROUTE OF DRUG ADMINISTRATION [None]
  - LOSS OF CONSCIOUSNESS [None]
